FAERS Safety Report 14776563 (Version 1)
Quarter: 2018Q2

REPORT INFORMATION
  Report Type: Spontaneous
  Country: JP (occurrence: JP)
  Receive Date: 20180418
  Receipt Date: 20180418
  Transmission Date: 20180711
  Serious: Yes (Hospitalization)
  Sender: FDA-Public Use
  Company Number: PHJP2018JP008694

PATIENT
  Age: 51 Year
  Sex: Male

DRUGS (3)
  1. TEGRETOL [Suspect]
     Active Substance: CARBAMAZEPINE
     Dosage: 200 MG, PRN
     Route: 048
  2. TEGRETOL [Suspect]
     Active Substance: CARBAMAZEPINE
     Dosage: 1 DF, 5QD (AT 7:18, 10:36, 15:42, 18:30, AND 19:30)
     Route: 048
  3. TEGRETOL [Suspect]
     Active Substance: CARBAMAZEPINE
     Indication: EPILEPSY
     Dosage: 400 MG, UNK
     Route: 048

REACTIONS (2)
  - Asthenia [Recovered/Resolved]
  - Dysstasia [Recovered/Resolved]

NARRATIVE: CASE EVENT DATE: 20180412
